FAERS Safety Report 11454043 (Version 1)
Quarter: 2015Q3

REPORT INFORMATION
  Report Type: Report from Study
  Country: US (occurrence: US)
  Receive Date: 20150903
  Receipt Date: 20150903
  Transmission Date: 20151125
  Serious: Yes (Other)
  Sender: FDA-Public Use
  Company Number: US-ROCHE-1629267

PATIENT
  Age: 11 Year
  Sex: Male
  Weight: 19.07 kg

DRUGS (4)
  1. CORTEF [Concomitant]
     Active Substance: HYDROCORTISONE
  2. NUTROPIN AQ [Suspect]
     Active Substance: SOMATROPIN
     Indication: HYPOPITUITARISM
     Route: 058
  3. LEVOXYL [Concomitant]
     Active Substance: LEVOTHYROXINE SODIUM
  4. SINGULAIR [Concomitant]
     Active Substance: MONTELUKAST SODIUM

REACTIONS (6)
  - Drug dose omission [Unknown]
  - Blood glucose decreased [Unknown]
  - Growth retardation [Unknown]
  - Blood cortisol decreased [Unknown]
  - Blood calcium decreased [Unknown]
  - Malaise [Unknown]

NARRATIVE: CASE EVENT DATE: 20140217
